FAERS Safety Report 12549887 (Version 2)
Quarter: 2016Q3

REPORT INFORMATION
  Report Type: Spontaneous
  Country: US (occurrence: US)
  Receive Date: 20160712
  Receipt Date: 20160728
  Transmission Date: 20161109
  Serious: Yes (Other)
  Sender: FDA-Public Use
  Company Number: US-SAOL THERAPEUTICS-2016SAO00117

PATIENT
  Age: 31 Year
  Sex: Female
  Weight: 58.96 kg

DRUGS (18)
  1. LIORESAL [Suspect]
     Active Substance: BACLOFEN
     Dosage: 570 ?G, \DAY
     Dates: start: 20160428
  2. MELATONIN [Concomitant]
     Active Substance: MELATONIN
     Dosage: 3 MG, 1X/DAY
  3. LIORESAL [Suspect]
     Active Substance: BACLOFEN
     Indication: CEREBRAL PALSY
     Dosage: 713 ?G, \DAY
     Route: 037
  4. LIORESAL [Suspect]
     Active Substance: BACLOFEN
     Dosage: 240 ?G, \DAY
     Dates: start: 20160701
  5. LIORESAL [Suspect]
     Active Substance: BACLOFEN
     Indication: MUSCLE SPASTICITY
     Dosage: UNK
     Dates: start: 1998
  6. LIORESAL [Suspect]
     Active Substance: BACLOFEN
     Indication: CEREBRAL PALSY
     Dosage: 320 ?G, \DAY
     Dates: start: 201606
  7. LIORESAL [Suspect]
     Active Substance: BACLOFEN
     Dosage: 280 ?G, \DAY
     Dates: start: 20160621
  8. LIORESAL [Suspect]
     Active Substance: BACLOFEN
     Dosage: 650 ?G, \DAY
  9. VITAMIN D [Concomitant]
     Active Substance: CHOLECALCIFEROL
     Dosage: 2000 UNK, \DAY
  10. AVELOX [Suspect]
     Active Substance: MOXIFLOXACIN HYDROCHLORIDE
  11. LIORESAL [Suspect]
     Active Substance: BACLOFEN
     Dosage: 500 ?G, \DAY
     Dates: start: 20160521
  12. KEPPRA [Concomitant]
     Active Substance: LEVETIRACETAM
     Dosage: 15 ML, 2X/DAY
     Dates: start: 2010
  13. CREON [Concomitant]
     Active Substance: PANCRELIPASE AMYLASE\PANCRELIPASE LIPASE\PANCRELIPASE PROTEASE
     Dosage: 1 UNKNOWN, 4X/DAY
  14. VALIUM [Concomitant]
     Active Substance: DIAZEPAM
     Dosage: 5 MG, AS NEEDED
  15. LIORESAL [Suspect]
     Active Substance: BACLOFEN
     Indication: MUSCLE SPASTICITY
     Dosage: 400 ?G, \DAY
     Dates: start: 201606
  16. ZANTAC [Concomitant]
     Active Substance: RANITIDINE HYDROCHLORIDE
     Dosage: 10 ML, 2X/DAY
  17. MIRALAX [Concomitant]
     Active Substance: POLYETHYLENE GLYCOL 3350
     Dosage: UNK UNK, AS NEEDED
  18. MOTRIN [Concomitant]
     Active Substance: IBUPROFEN
     Dosage: UNK, AS NEEDED

REACTIONS (9)
  - Hypertonia [Recovering/Resolving]
  - Complication associated with device [Not Recovered/Not Resolved]
  - Tracheostomy [Unknown]
  - Femur fracture [Unknown]
  - Wisdom teeth removal [Unknown]
  - Adenotonsillectomy [Unknown]
  - Tremor [Recovering/Resolving]
  - Drug withdrawal syndrome [Recovering/Resolving]
  - Tongue injury [None]

NARRATIVE: CASE EVENT DATE: 2005
